FAERS Safety Report 23724736 (Version 1)
Quarter: 2024Q2

REPORT INFORMATION
  Report Type: Spontaneous
  Country: US (occurrence: US)
  Receive Date: 20240409
  Receipt Date: 20240409
  Transmission Date: 20240716
  Serious: No
  Sender: FDA-Public Use
  Company Number: US-BRISTOL-MYERS SQUIBB COMPANY-2024-055085

PATIENT
  Age: 59 Year
  Sex: Female
  Weight: 56.7 kg

DRUGS (2)
  1. LENALIDOMIDE [Suspect]
     Active Substance: LENALIDOMIDE
     Indication: Plasma cell myeloma
     Route: 048
     Dates: start: 2021
  2. LENALIDOMIDE [Suspect]
     Active Substance: LENALIDOMIDE

REACTIONS (1)
  - White blood cell count decreased [Not Recovered/Not Resolved]
